FAERS Safety Report 9632744 (Version 2)
Quarter: 2013Q4

REPORT INFORMATION
  Report Type: Report from Study
  Country: US (occurrence: US)
  Receive Date: 20131018
  Receipt Date: 20131121
  Transmission Date: 20140711
  Serious: Yes (Hospitalization)
  Sender: FDA-Public Use
  Company Number: US-US-EMD SERONO, INC.-7243519

PATIENT
  Age: 1 Year
  Sex: Male
  Weight: 12 kg

DRUGS (6)
  1. SAIZEN [(SOMATROPIN (RDNA ORIGIN) FOR INJECTION)] [Suspect]
     Indication: HYPOPITUITARISM
     Route: 058
     Dates: start: 20111107
  2. SAIZEN [(SOMATROPIN (RDNA ORIGIN) FOR INJECTION)] [Suspect]
     Route: 058
  3. HYDROCORTISONE [Concomitant]
     Indication: PRODUCT USED FOR UNKNOWN INDICATION
  4. DESMOPRESSIN ACETATE [Concomitant]
     Indication: DIABETES INSIPIDUS
     Route: 048
  5. LEVOTHYROXINE SODIUM [Concomitant]
     Indication: HYPOTHYROIDISM
     Route: 048
  6. SOLU-CORTEF [Concomitant]
     Indication: ADRENAL INSUFFICIENCY
     Route: 048

REACTIONS (8)
  - Lethargy [Unknown]
  - Febrile convulsion [Unknown]
  - Blood sodium increased [Unknown]
  - Blood chloride increased [Unknown]
  - Blood calcium increased [Unknown]
  - Blood potassium increased [Unknown]
  - Carbon dioxide decreased [Unknown]
  - Pyrexia [Unknown]
